FAERS Safety Report 18629506 (Version 4)
Quarter: 2022Q1

REPORT INFORMATION
  Report Type: Spontaneous
  Country: CA (occurrence: CA)
  Receive Date: 20201217
  Receipt Date: 20220316
  Transmission Date: 20220424
  Serious: Yes (Other)
  Sender: FDA-Public Use
  Company Number: CA-PFIZER INC-2020349432

PATIENT
  Age: 37 Year
  Sex: Male
  Weight: 75 kg

DRUGS (9)
  1. XELJANZ [Suspect]
     Active Substance: TOFACITINIB CITRATE
     Indication: Colitis ulcerative
     Dosage: 10 MG, 2X/DAY
     Route: 048
     Dates: start: 20200803, end: 202012
  2. XELJANZ [Suspect]
     Active Substance: TOFACITINIB CITRATE
     Dosage: 5 MG, 2X/DAY
     Route: 048
     Dates: start: 20200803, end: 202012
  3. XELJANZ [Suspect]
     Active Substance: TOFACITINIB CITRATE
     Dosage: 10 MG, 2X/DAY FOR 4 WEEK
     Route: 048
     Dates: start: 20211206, end: 202201
  4. XELJANZ [Suspect]
     Active Substance: TOFACITINIB CITRATE
     Dosage: 5 MG, 2X/DAY
     Route: 048
     Dates: start: 20220103
  5. BUDESONIDE [Concomitant]
     Active Substance: BUDESONIDE
     Dosage: DURING DAY
  6. HYDROCORTISONE [Concomitant]
     Active Substance: HYDROCORTISONE
     Dosage: EVERY OTHER DAY AT NIGHT TIME
     Route: 054
  7. MESALAMINE [Concomitant]
     Active Substance: MESALAMINE
     Dosage: 4 MG  ENEMA Q HS
  8. STELARA [Concomitant]
     Active Substance: USTEKINUMAB
     Indication: Colitis ulcerative
     Dosage: 1 DF EVERY 8 WEEK
     Dates: start: 2021
  9. STELARA [Concomitant]
     Active Substance: USTEKINUMAB
     Dosage: 1 DF DROP EVERY 4 WEEK
     Dates: start: 202112

REACTIONS (8)
  - Crohn^s disease [Unknown]
  - Therapeutic product effect incomplete [Unknown]
  - Abdominal discomfort [Unknown]
  - Gastrointestinal inflammation [Unknown]
  - Gastrointestinal ulcer [Unknown]
  - Condition aggravated [Unknown]
  - Abdominal pain upper [Unknown]
  - Malaise [Unknown]

NARRATIVE: CASE EVENT DATE: 20220101
